FAERS Safety Report 21985195 (Version 2)
Quarter: 2023Q1

REPORT INFORMATION
  Report Type: Report from Study
  Country: ES (occurrence: ES)
  Receive Date: 20230213
  Receipt Date: 20230327
  Transmission Date: 20230418
  Serious: Yes (Other)
  Sender: FDA-Public Use
  Company Number: ES-TAKEDA-2023TUS014291

PATIENT
  Age: 4 Year
  Sex: Male

DRUGS (12)
  1. TEDUGLUTIDE [Suspect]
     Active Substance: TEDUGLUTIDE
     Indication: Short-bowel syndrome
     Dosage: 0.32 MILLIGRAM, QD
     Route: 042
     Dates: start: 20200513, end: 20210717
  2. TEDUGLUTIDE [Suspect]
     Active Substance: TEDUGLUTIDE
     Indication: Short-bowel syndrome
     Dosage: 0.32 MILLIGRAM, QD
     Route: 042
     Dates: start: 20200513, end: 20210717
  3. TEDUGLUTIDE [Suspect]
     Active Substance: TEDUGLUTIDE
     Indication: Short-bowel syndrome
     Dosage: 0.32 MILLIGRAM, QD
     Route: 042
     Dates: start: 20200513, end: 20210717
  4. TEDUGLUTIDE [Suspect]
     Active Substance: TEDUGLUTIDE
     Indication: Short-bowel syndrome
     Dosage: 0.32 MILLIGRAM, QD
     Route: 042
     Dates: start: 20200513, end: 20210717
  5. TEDUGLUTIDE [Suspect]
     Active Substance: TEDUGLUTIDE
     Dosage: 0.32 MILLIGRAM, QD
     Route: 042
     Dates: start: 20210721
  6. TEDUGLUTIDE [Suspect]
     Active Substance: TEDUGLUTIDE
     Dosage: 0.32 MILLIGRAM, QD
     Route: 042
     Dates: start: 20210721
  7. TEDUGLUTIDE [Suspect]
     Active Substance: TEDUGLUTIDE
     Dosage: 0.32 MILLIGRAM, QD
     Route: 042
     Dates: start: 20210721
  8. TEDUGLUTIDE [Suspect]
     Active Substance: TEDUGLUTIDE
     Dosage: 0.32 MILLIGRAM, QD
     Route: 042
     Dates: start: 20210721
  9. HIBOR [Concomitant]
     Indication: Thrombosis prophylaxis
     Dosage: 1525 INTERNATIONAL UNIT, QD
     Route: 030
     Dates: start: 20211111, end: 20220221
  10. VITAMIN D [Concomitant]
     Active Substance: VITAMIN D NOS
     Indication: Vitamin D deficiency
     Dosage: 400 INTERNATIONAL UNIT, QD
     Route: 048
     Dates: start: 20211111, end: 20220808
  11. SODIUM BICARBONATE [Concomitant]
     Active Substance: SODIUM BICARBONATE
     Indication: Acidosis
     Dosage: 1000 MILLIGRAM, TID
     Route: 048
     Dates: start: 20220221
  12. MICONAZOLE NITRATE [Concomitant]
     Active Substance: MICONAZOLE NITRATE
     Indication: Anorectal discomfort
     Dosage: UNK UNK, BID
     Route: 061
     Dates: start: 20220511, end: 20220521

REACTIONS (1)
  - Growth retardation [Recovered/Resolved]

NARRATIVE: CASE EVENT DATE: 20230118
